FAERS Safety Report 21516061 (Version 2)
Quarter: 2023Q1

REPORT INFORMATION
  Report Type: Spontaneous
  Country: US (occurrence: US)
  Receive Date: 20221027
  Receipt Date: 20230324
  Transmission Date: 20230418
  Serious: No
  Sender: FDA-Public Use
  Company Number: US-ABBVIE-4178694

PATIENT
  Sex: Male

DRUGS (5)
  1. IMBRUVICA [Suspect]
     Active Substance: IBRUTINIB
     Indication: Product used for unknown indication
     Route: 048
  2. IMBRUVICA [Suspect]
     Active Substance: IBRUTINIB
     Indication: Product used for unknown indication
     Route: 048
     Dates: start: 20190701, end: 20220930
  3. ASPIRIN [Concomitant]
     Active Substance: ASPIRIN
     Indication: Product used for unknown indication
     Dates: start: 20150101
  4. Allertec (costco) [Concomitant]
     Indication: Product used for unknown indication
     Dates: start: 20200101
  5. Centrum silver vitamins [Concomitant]
     Indication: Product used for unknown indication
     Route: 048
     Dates: start: 20140101

REACTIONS (1)
  - Atrial fibrillation [Unknown]
